FAERS Safety Report 25104128 (Version 1)
Quarter: 2025Q1

REPORT INFORMATION
  Report Type: Spontaneous
  Country: BR (occurrence: BR)
  Receive Date: 20250321
  Receipt Date: 20250321
  Transmission Date: 20250409
  Serious: Yes (Other)
  Sender: BAYER HEALTHCARE PHARMACEUTICALS INC.
  Company Number: BR-BAYER-2025A036488

PATIENT
  Sex: Female

DRUGS (1)
  1. BETAFERON [Suspect]
     Active Substance: INTERFERON BETA-1B

REACTIONS (2)
  - Multiple sclerosis relapse [None]
  - Injection site necrosis [None]
